FAERS Safety Report 8502653-5 (Version None)
Quarter: 2012Q3

REPORT INFORMATION
  Report Type: 
  Country: None (occurrence: None)
  Receive Date: 20120711
  Receipt Date: 20120709
  Transmission Date: 20120928
  Serious: Yes (Other)
  Sender: FDA-Public Use
  Company Number: US-PFIZER INC-2012165328

PATIENT
  Sex: Female
  Weight: 72.562 kg

DRUGS (3)
  1. EFFEXOR XR [Suspect]
     Indication: ANXIETY
  2. EFFEXOR XR [Suspect]
     Indication: DEPRESSION
     Dosage: 150 MG, DAILY
     Dates: start: 19980101
  3. LAMICTAL [Concomitant]
     Indication: AFFECTIVE DISORDER
     Dosage: TO MAKE THE DOSE UP TO 400 MG IN A DAY
     Route: 048

REACTIONS (1)
  - ARTHROPATHY [None]
